FAERS Safety Report 6270577-2 (Version None)
Quarter: 2009Q3

REPORT INFORMATION
  Report Type: 
  Country: None (occurrence: None)
  Receive Date: 20090716
  Receipt Date: 20090713
  Transmission Date: 20100115
  Serious: Yes (Death, Hospitalization, Other)
  Sender: FDA-Public Use
  Company Number: FR-ROXANE LABORATORIES, INC.-2009-RO-00689RO

PATIENT
  Age: 90 Year
  Sex: Female

DRUGS (2)
  1. DIGOXIN [Suspect]
  2. FAB FRAGMENTS [Suspect]
     Indication: THERAPEUTIC AGENT TOXICITY
     Route: 042

REACTIONS (5)
  - ATRIOVENTRICULAR BLOCK FIRST DEGREE [None]
  - DRUG TOXICITY [None]
  - MULTI-ORGAN FAILURE [None]
  - RENAL FAILURE ACUTE [None]
  - SHOCK [None]
